FAERS Safety Report 7431165-5 (Version None)
Quarter: 2011Q2

REPORT INFORMATION
  Report Type: 
  Country: None (occurrence: None)
  Receive Date: 20110421
  Receipt Date: 20110419
  Transmission Date: 20111010
  Serious: Yes (Hospitalization)
  Sender: FDA-Public Use
  Company Number: US-B.I. PHARMACEUTICALS,INC./RIDGEFIELD-2011-BP-06527BP

PATIENT
  Sex: Male

DRUGS (16)
  1. FLONASE [Concomitant]
  2. CELEBREX [Concomitant]
  3. ALLOPURINOL [Concomitant]
  4. LIDOCAINE [Concomitant]
  5. PRADAXA [Suspect]
     Indication: ATRIAL FIBRILLATION
     Dates: start: 20110219
  6. TOPROL-XL [Concomitant]
  7. DILTIAZEM HCL [Concomitant]
  8. PROSCAR [Concomitant]
  9. ASTELIN [Concomitant]
  10. ALBUTEROL [Concomitant]
  11. FLUOCINONIDE [Concomitant]
  12. GABAPENTIN [Concomitant]
     Dosage: 1200 MG
  13. OXYCODONE HCL [Concomitant]
  14. LIPITOR [Concomitant]
  15. PLAVIX [Concomitant]
  16. DURAGESIC [Concomitant]

REACTIONS (3)
  - ANXIETY [None]
  - FEELING ABNORMAL [None]
  - DISTURBANCE IN ATTENTION [None]
